FAERS Safety Report 20338122 (Version 3)
Quarter: 2022Q1

REPORT INFORMATION
  Report Type: Report from Study
  Country: EG (occurrence: EG)
  Receive Date: 20220115
  Receipt Date: 20220325
  Transmission Date: 20220423
  Serious: Yes (Other)
  Sender: FDA-Public Use
  Company Number: EG-NOVARTISPH-NVSC2022EG006453

PATIENT
  Age: 26 Year
  Sex: Male

DRUGS (10)
  1. COSENTYX [Suspect]
     Active Substance: SECUKINUMAB
     Indication: Ankylosing spondylitis
     Dosage: 150 MG, QMO (WITHOUT LOADING DOSE FOR 10 MONTHS)
     Route: 058
     Dates: end: 202108
  2. COSENTYX [Suspect]
     Active Substance: SECUKINUMAB
     Indication: Spondyloarthropathy
  3. CELEBREX [Concomitant]
     Active Substance: CELECOXIB
     Indication: Analgesic therapy
     Dosage: 1 DOSAGE FORM, BID
     Route: 065
     Dates: start: 202102
  4. DIMRA [Concomitant]
     Indication: Analgesic therapy
     Dosage: 1 DOSAGE FORM, BID
     Route: 065
     Dates: start: 2019
  5. DIMRA [Concomitant]
     Indication: Muscle relaxant therapy
  6. CORTISONE [Concomitant]
     Active Substance: CORTISONE
     Indication: Analgesic therapy
     Dosage: 0.5 DOSAGE FORM (IN THE MORNING)
     Route: 065
  7. CORTISONE [Concomitant]
     Active Substance: CORTISONE
     Dosage: 1 DOSAGE FORM, QD
     Route: 065
  8. DICLOFENAC SODIUM [Concomitant]
     Active Substance: DICLOFENAC SODIUM
     Indication: Analgesic therapy
     Dosage: UNK, QD
     Route: 065
     Dates: start: 20220109
  9. DICLOFENAC SODIUM [Concomitant]
     Active Substance: DICLOFENAC SODIUM
     Dosage: UNK, BID (WHEN NEEDED)
     Route: 065
  10. PEPZOL [Concomitant]
     Indication: Abdominal discomfort
     Dosage: UNK UNK, QD (ON EMPTY STOMACH)
     Route: 065
     Dates: start: 20220109

REACTIONS (10)
  - Pelvic pain [Not Recovered/Not Resolved]
  - Dysstasia [Not Recovered/Not Resolved]
  - Pain [Not Recovered/Not Resolved]
  - Pain in extremity [Recovering/Resolving]
  - Fatigue [Recovering/Resolving]
  - Movement disorder [Recovering/Resolving]
  - Insomnia [Recovering/Resolving]
  - Back pain [Recovering/Resolving]
  - Drug ineffective [Not Recovered/Not Resolved]
  - Inappropriate schedule of product administration [Not Recovered/Not Resolved]

NARRATIVE: CASE EVENT DATE: 20220110
